FAERS Safety Report 7075012-2 (Version None)
Quarter: 2010Q4

REPORT INFORMATION
  Report Type: 
  Country: None (occurrence: None)
  Receive Date: 20101029
  Receipt Date: 20100219
  Transmission Date: 20110411
  Serious: No
  Sender: FDA-Public Use
  Company Number: US-WYE-H13751310

PATIENT
  Age: 80 Year
  Sex: Female
  Weight: 57.66 kg

DRUGS (1)
  1. LORATADINE AND PSEUDOEPHEDRINE SULFATE [Suspect]
     Indication: HYPERSENSITIVITY
     Dosage: ONE TABLET TWICE
     Route: 048
     Dates: start: 20100209, end: 20100210

REACTIONS (1)
  - INSOMNIA [None]
